FAERS Safety Report 23002462 (Version 2)
Quarter: 2024Q3

REPORT INFORMATION
  Report Type: Spontaneous
  Country: US (occurrence: None)
  Receive Date: 20230928
  Receipt Date: 20240911
  Transmission Date: 20241017
  Serious: Yes (Death, Hospitalization, Other)
  Sender: ASTRAZENECA
  Company Number: 2023A217702

PATIENT
  Age: 86 Year
  Sex: Male
  Weight: 60.5 kg

DRUGS (7)
  1. OLAPARIB [Suspect]
     Active Substance: OLAPARIB
     Indication: Adenocarcinoma
     Route: 048
     Dates: start: 20230427, end: 20230803
  2. XANAX [Concomitant]
     Active Substance: ALPRAZOLAM
     Dates: start: 20220107
  3. ASPIRIN [Concomitant]
     Active Substance: ASPIRIN
  4. CATAPRES [Concomitant]
     Active Substance: CLONIDINE HYDROCHLORIDE
  5. ALLEGRA [Concomitant]
     Active Substance: FEXOFENADINE HYDROCHLORIDE
  6. IMDUR [Concomitant]
     Active Substance: ISOSORBIDE MONONITRATE
     Dates: start: 20201009
  7. PRINIVIL [Concomitant]
     Active Substance: LISINOPRIL
     Dates: start: 20221011

REACTIONS (13)
  - Prostate cancer metastatic [Fatal]
  - Fatigue [Recovered/Resolved]
  - Toxic encephalopathy [Recovered/Resolved]
  - Dyspnoea [Recovered/Resolved]
  - Atrial fibrillation [Recovered/Resolved]
  - Sepsis [Recovered/Resolved]
  - Cardiac arrest [Recovered/Resolved]
  - Dry mouth [Recovered/Resolved]
  - Feeding disorder [Recovered/Resolved]
  - Asthenia [Unknown]
  - Pyrexia [Recovered/Resolved]
  - Nausea [Unknown]
  - Insomnia [Recovered/Resolved]

NARRATIVE: CASE EVENT DATE: 20230622
